FAERS Safety Report 13552705 (Version 1)
Quarter: 2017Q2

REPORT INFORMATION
  Report Type: Spontaneous
  Country: GR (occurrence: GR)
  Receive Date: 20170517
  Receipt Date: 20170517
  Transmission Date: 20170830
  Serious: Yes (Other)
  Sender: FDA-Public Use
  Company Number: GR-ROCHE-1932360

PATIENT
  Age: 62 Year
  Sex: Male

DRUGS (2)
  1. VEMURAFENIB [Suspect]
     Active Substance: VEMURAFENIB
     Indication: MALIGNANT MELANOMA
     Route: 065
  2. COTELLIC [Suspect]
     Active Substance: COBIMETINIB
     Indication: MALIGNANT MELANOMA
     Route: 065

REACTIONS (9)
  - Diarrhoea [Unknown]
  - Aspartate aminotransferase increased [Unknown]
  - Alanine aminotransferase increased [Unknown]
  - Keratoacanthoma [Unknown]
  - Myalgia [Unknown]
  - Blood creatine phosphokinase abnormal [Unknown]
  - Hyperkeratosis [Unknown]
  - Pyrexia [Unknown]
  - Fatigue [Unknown]
